FAERS Safety Report 5199172-3 (Version None)
Quarter: 2007Q1

REPORT INFORMATION
  Report Type: 
  Country: None (occurrence: None)
  Receive Date: 20070104
  Receipt Date: 20061227
  Transmission Date: 20070707
  Serious: Yes (Hospitalization)
  Sender: FDA-Public Use
  Company Number: FR-PFIZER INC-2001047561FR

PATIENT
  Sex: Male

DRUGS (6)
  1. ALDACTONE [Suspect]
     Route: 065
  2. DOPRAM [Suspect]
     Dosage: TEXT:0.3 MG/KG/HOUR
     Route: 042
  3. DOPRAM [Suspect]
     Dosage: TEXT:0.5 MG/KG/HOUR
     Route: 042
  4. DOPRAM [Suspect]
     Dosage: TEXT:4 MG/KG/ EVERY 6 HOUR
     Route: 048
  5. LASIX [Suspect]
  6. RANIPLEX [Suspect]
     Dosage: TEXT:5 MG/KG/24 HOUR
     Route: 042

REACTIONS (4)
  - BLOOD MAGNESIUM DECREASED [None]
  - BLOOD PHOSPHORUS DECREASED [None]
  - BLOOD POTASSIUM INCREASED [None]
  - ELECTROCARDIOGRAM ABNORMAL [None]
